FAERS Safety Report 9060341 (Version 1)
Quarter: 2013Q1

REPORT INFORMATION
  Report Type: Spontaneous
  Country: US (occurrence: US)
  Receive Date: 20130212
  Receipt Date: 20130212
  Transmission Date: 20140127
  Serious: Yes (Other)
  Sender: FDA-Public Use
  Company Number: US-GLAXOSMITHKLINE-A1010796A

PATIENT
  Age: 48 Year
  Sex: Male

DRUGS (5)
  1. ARZERRA [Suspect]
     Indication: WALDENSTROM^S MACROGLOBULINAEMIA
     Route: 042
     Dates: start: 201007
  2. TYLENOL [Concomitant]
  3. METHYLPREDNISONE [Concomitant]
  4. BENADRYL [Concomitant]
  5. VELCADE [Concomitant]

REACTIONS (9)
  - Progressive multifocal leukoencephalopathy [Recovering/Resolving]
  - Dizziness [Recovering/Resolving]
  - Vertigo [Recovering/Resolving]
  - Dyspepsia [Recovering/Resolving]
  - Abdominal discomfort [Recovering/Resolving]
  - Feeling of body temperature change [Recovering/Resolving]
  - Rash [Recovering/Resolving]
  - White blood cell count decreased [Recovering/Resolving]
  - Off label use [Unknown]
